FAERS Safety Report 21157956 (Version 2)
Quarter: 2022Q3

REPORT INFORMATION
  Report Type: Report from Study
  Country: US (occurrence: US)
  Receive Date: 20220801
  Receipt Date: 20220901
  Transmission Date: 20221026
  Serious: Yes (Hospitalization, Other)
  Sender: FDA-Public Use
  Company Number: US-PFIZER INC-PV202200030717

PATIENT
  Age: 54 Year
  Sex: Female
  Weight: 119.7 kg

DRUGS (21)
  1. PAXLOVID [Suspect]
     Active Substance: NIRMATRELVIR\RITONAVIR
     Indication: COVID-19 treatment
     Dosage: UNK
  2. SPIRONOLACTONE [Suspect]
     Active Substance: SPIRONOLACTONE
     Dosage: UNK
  3. SIMVASTATIN [Suspect]
     Active Substance: SIMVASTATIN
     Dosage: UNK
  4. KORLYM [Suspect]
     Active Substance: MIFEPRISTONE
     Indication: Cushing^s syndrome
     Dosage: 300 MG, DAILY
     Route: 048
     Dates: start: 20220517, end: 2022
  5. KORLYM [Suspect]
     Active Substance: MIFEPRISTONE
     Dosage: 600 MG, 1X/DAY
     Route: 048
     Dates: start: 2022, end: 20220707
  6. DEXAMETHASONE [Suspect]
     Active Substance: DEXAMETHASONE
     Indication: Product used for unknown indication
     Dosage: UNK
     Dates: start: 202207
  7. LISINOPRIL [Suspect]
     Active Substance: LISINOPRIL
     Dosage: UNK, AS NEEDED
     Dates: start: 202207
  8. ALBUTEROL [Concomitant]
     Active Substance: ALBUTEROL
     Dosage: UNK
  9. ALLEGRA [Concomitant]
     Active Substance: FEXOFENADINE HYDROCHLORIDE
     Dosage: UNK
  10. ALLOPURINOL [Concomitant]
     Active Substance: ALLOPURINOL
     Dosage: UNK
  11. ASPIRIN [Concomitant]
     Active Substance: ASPIRIN
     Dosage: UNK
  12. DOXYCYCLINE [Concomitant]
     Active Substance: DOXYCYCLINE
     Dosage: UNK
  13. LEVAQUIN [Concomitant]
     Active Substance: LEVOFLOXACIN
     Dosage: UNK
  14. METFORMIN [Concomitant]
     Active Substance: METFORMIN HYDROCHLORIDE
     Dosage: UNK
  15. METOPROLOL [Concomitant]
     Active Substance: METOPROLOL
     Dosage: UNK
  16. NEURONTIN [Concomitant]
     Active Substance: GABAPENTIN
     Dosage: UNK
  17. NEXIUM I.V. [Concomitant]
     Active Substance: ESOMEPRAZOLE SODIUM
     Dosage: UNK
  18. PHENAZOPYRIDINE [Concomitant]
     Active Substance: PHENAZOPYRIDINE
     Dosage: UNK
  19. VITAMIN D NOS [Concomitant]
     Active Substance: VITAMIN D NOS
     Dosage: UNK
  20. TRULICITY [Concomitant]
     Active Substance: DULAGLUTIDE
     Dosage: UNK
  21. WELLBUTRIN [Concomitant]
     Active Substance: BUPROPION HYDROCHLORIDE
     Dosage: UNK

REACTIONS (8)
  - COVID-19 pneumonia [Recovering/Resolving]
  - Drug ineffective [Recovering/Resolving]
  - Blood pressure increased [Not Recovered/Not Resolved]
  - Blood potassium decreased [Recovered/Resolved]
  - Blood pressure decreased [Recovered/Resolved]
  - Dizziness [Unknown]
  - Blood potassium increased [Unknown]
  - Contraindicated product administered [Unknown]
